FAERS Safety Report 9663418 (Version 2)
Quarter: 2013Q4

REPORT INFORMATION
  Report Type: Spontaneous
  Country: KR (occurrence: KR)
  Receive Date: 20131101
  Receipt Date: 20131112
  Transmission Date: 20140711
  Serious: Yes (Death, Other)
  Sender: FDA-Public Use
  Company Number: KR-RANBAXY-2013RR-74767

PATIENT
  Age: 82 Year
  Sex: Female

DRUGS (3)
  1. METFORMIN [Suspect]
     Indication: TYPE 2 DIABETES MELLITUS
     Dosage: 2000 MG/DAY
     Route: 065
  2. CIMETIDINE [Suspect]
     Indication: PRODUCT USED FOR UNKNOWN INDICATION
     Dosage: 600 MG/DAY
     Route: 065
  3. DEXIBUPROFEN [Concomitant]
     Indication: SPINAL COMPRESSION FRACTURE
     Dosage: 600 MG/DAY
     Route: 065

REACTIONS (5)
  - Lactic acidosis [Recovering/Resolving]
  - Pancreatitis acute [Recovering/Resolving]
  - Renal failure acute [Recovering/Resolving]
  - Sepsis [Unknown]
  - Pneumonia aspiration [Unknown]
